FAERS Safety Report 17402023 (Version 7)
Quarter: 2021Q3

REPORT INFORMATION
  Report Type: Report from Study
  Country: US (occurrence: US)
  Receive Date: 20200211
  Receipt Date: 20210810
  Transmission Date: 20211014
  Serious: No
  Sender: FDA-Public Use
  Company Number: NVSC2020US030285

PATIENT
  Sex: Female

DRUGS (1)
  1. COSENTYX [Suspect]
     Active Substance: SECUKINUMAB
     Indication: SKIN DISORDER
     Dosage: 300 MG
     Route: 065

REACTIONS (3)
  - Skin haemorrhage [Unknown]
  - Product dose omission issue [Unknown]
  - Psoriasis [Unknown]
